FAERS Safety Report 7514725-2 (Version None)
Quarter: 2011Q2

REPORT INFORMATION
  Report Type: 
  Country: None (occurrence: None)
  Receive Date: 20110601
  Receipt Date: 20110411
  Transmission Date: 20111010
  Serious: Yes (Hospitalization, Other)
  Sender: FDA-Public Use
  Company Number: US-BAYER-2011-031580

PATIENT
  Age: 27 Year
  Sex: Female

DRUGS (7)
  1. PROAIR HFA [Concomitant]
  2. YASMIN [Suspect]
     Indication: CONTRACEPTION
     Dosage: UNK
     Dates: start: 20090501, end: 20090601
  3. OMEPRAZOLE [Concomitant]
     Dosage: UNK
     Dates: start: 20090609
  4. ROBAXIN [Concomitant]
  5. IBUPROFEN [Concomitant]
     Dosage: 600 MG, UNK
     Dates: start: 20090501
  6. HYDROCODONE BITARTRATE [Concomitant]
     Dosage: UNK
     Dates: start: 20090609, end: 20091202
  7. METHOCARBAMOL [Concomitant]

REACTIONS (2)
  - THROMBOSIS [None]
  - PULMONARY EMBOLISM [None]
